FAERS Safety Report 20661202 (Version 1)
Quarter: 2022Q2

REPORT INFORMATION
  Report Type: Spontaneous
  Country: JP (occurrence: JP)
  Receive Date: 20220401
  Receipt Date: 20220401
  Transmission Date: 20220720
  Serious: Yes (Life-Threatening, Hospitalization)
  Sender: FDA-Public Use
  Company Number: JP-STRIDES ARCOLAB LIMITED-2022SP003293

PATIENT
  Age: 72 Year
  Sex: Female

DRUGS (2)
  1. METHOTREXATE [Suspect]
     Active Substance: METHOTREXATE
     Indication: Rheumatoid arthritis
     Dosage: 6 MILLIGRAM, ONCE A WEEK
     Route: 065
  2. IGURATIMOD [Suspect]
     Active Substance: IGURATIMOD
     Indication: Rheumatoid arthritis
     Dosage: 25 MILLIGRAM,/PER DAY
     Route: 065

REACTIONS (8)
  - Paralysis [Unknown]
  - Dysphagia [Unknown]
  - Lymphoproliferative disorder [Unknown]
  - Varicella zoster pneumonia [Recovered/Resolved]
  - Encephalitis [Unknown]
  - Varicella zoster virus infection [Recovered/Resolved]
  - Hepatic neoplasm [Unknown]
  - Epstein-Barr virus infection reactivation [Recovered/Resolved]
